FAERS Safety Report 15640337 (Version 1)
Quarter: 2018Q4

REPORT INFORMATION
  Report Type: Spontaneous
  Country: FR (occurrence: FR)
  Receive Date: 20181120
  Receipt Date: 20181120
  Transmission Date: 20190205
  Serious: Yes (Other)
  Sender: FDA-Public Use
  Company Number: FR-BAYER-2018-213493

PATIENT
  Sex: Female

DRUGS (2)
  1. FIBRINOGEN [Concomitant]
     Active Substance: FIBRINOGEN HUMAN
  2. ACETYLSALICYLIC ACID({=100 MG) [Suspect]
     Active Substance: ASPIRIN
     Indication: BLOOD DISORDER PROPHYLAXIS

REACTIONS (4)
  - Off label use [None]
  - Abortion late [None]
  - Maternal exposure during pregnancy [None]
  - Product use in unapproved indication [None]
